FAERS Safety Report 26199432 (Version 1)
Quarter: 2025Q4

REPORT INFORMATION
  Report Type: Report from Study
  Country: CL (occurrence: CL)
  Receive Date: 20251225
  Receipt Date: 20251225
  Transmission Date: 20260118
  Serious: Yes (Other)
  Sender: ROCHE
  Company Number: CL-ROCHE-10000466885

PATIENT
  Age: 68 Year
  Sex: Female

DRUGS (1)
  1. PHESGO [Suspect]
     Active Substance: HYALURONIDASE-ZZXF\PERTUZUMAB\TRASTUZUMAB
     Indication: Breast cancer metastatic
     Dosage: 18 CYCLES APPROXIMATELY
     Route: 058
     Dates: start: 20240626, end: 20250710

REACTIONS (1)
  - Lymphadenopathy mediastinal [Unknown]
